FAERS Safety Report 8237707-4 (Version None)
Quarter: 2012Q1

REPORT INFORMATION
  Report Type: 
  Country: None (occurrence: None)
  Receive Date: 20120327
  Receipt Date: 20120316
  Transmission Date: 20120608
  Serious: Yes (Hospitalization, Other)
  Sender: FDA-Public Use
  Company Number: US-ACTELION-A-NJ2012-59869

PATIENT

DRUGS (3)
  1. REVATIO [Concomitant]
  2. TRACLEER [Suspect]
     Indication: PULMONARY ARTERIAL HYPERTENSION
     Dosage: UNK
     Route: 048
     Dates: start: 20030630
  3. TRACLEER [Suspect]
     Dosage: UNK
     Route: 048
     Dates: start: 20120101

REACTIONS (3)
  - UPPER LIMB FRACTURE [None]
  - FALL [None]
  - LIMB INJURY [None]
